FAERS Safety Report 6287597-4 (Version None)
Quarter: 2009Q3

REPORT INFORMATION
  Report Type: 
  Country: None (occurrence: None)
  Receive Date: 20090727
  Receipt Date: 20090727
  Transmission Date: 20100115
  Serious: Yes (Disabling, Other)
  Sender: FDA-Public Use
  Company Number: None

PATIENT
  Age: 84 Year
  Sex: Female
  Weight: 59.4212 kg

DRUGS (1)
  1. CEPHALEXIN [Suspect]
     Indication: SKIN INFECTION
     Dosage: 1 3 TIMES DAILY MOUTH 11/11/08 - 30 THEN 14 MORE
     Route: 048
     Dates: start: 20081111, end: 20081125

REACTIONS (1)
  - CLOSTRIDIUM DIFFICILE COLITIS [None]
